FAERS Safety Report 6171952-7 (Version None)
Quarter: 2009Q2

REPORT INFORMATION
  Report Type: 
  Country: None (occurrence: None)
  Receive Date: 20090429
  Receipt Date: 20090420
  Transmission Date: 20091009
  Serious: Yes (Hospitalization)
  Sender: FDA-Public Use
  Company Number: PHHO2009BE05259

PATIENT
  Sex: Male

DRUGS (5)
  1. VOLTAREN [Suspect]
     Indication: PAIN
     Dosage: 75 MG, UNK
     Route: 048
     Dates: start: 20081220
  2. RAD 666 RAD+TAB [Suspect]
     Indication: TRANSITIONAL CELL CARCINOMA
     Dosage: 10 MG/DAY
     Route: 048
     Dates: start: 20081222
  3. MORPHINE SULFATE [Suspect]
     Indication: PAIN
     Dosage: 60 MG, UNK
     Dates: start: 20081220
  4. MORPHINE SULFATE [Suspect]
     Indication: PAIN
     Dosage: 30 MG, UNK
     Route: 048
  5. SODIUM BICARBONATE [Concomitant]

REACTIONS (8)
  - CONFUSIONAL STATE [None]
  - DYSPNOEA [None]
  - HYPERKALAEMIA [None]
  - HYPONATRAEMIA [None]
  - OVERDOSE [None]
  - RENAL FAILURE ACUTE [None]
  - THROMBOSIS [None]
  - VOMITING [None]
